FAERS Safety Report 6478861-4 (Version None)
Quarter: 2009Q4

REPORT INFORMATION
  Report Type: 
  Country: None (occurrence: None)
  Receive Date: 20091207
  Receipt Date: 20091124
  Transmission Date: 20100525
  Serious: Yes (Other)
  Sender: FDA-Public Use
  Company Number: US-B.I. PHARMACEUTICALS,INC./RIDGEFIELD-2009-DE-07303GD

PATIENT
  Age: 35 Year
  Sex: Female

DRUGS (3)
  1. NEVIRAPINE [Suspect]
     Indication: HIV TEST POSITIVE
  2. DIDANOSINE [Suspect]
     Indication: HIV TEST POSITIVE
  3. INDINIVIR SULFATE [Suspect]
     Indication: HIV TEST POSITIVE

REACTIONS (3)
  - ALTERED STATE OF CONSCIOUSNESS [None]
  - IMMUNE RECONSTITUTION SYNDROME [None]
  - MUSCULAR WEAKNESS [None]
